FAERS Safety Report 9224236 (Version 1)
Quarter: 2013Q2

REPORT INFORMATION
  Report Type: Spontaneous
  Country: US (occurrence: US)
  Receive Date: 20130411
  Receipt Date: 20130411
  Transmission Date: 20140414
  Serious: No
  Sender: FDA-Public Use
  Company Number: US-009507513-1304USA000668

PATIENT
  Age: 18 Year
  Sex: Female
  Weight: 47.62 kg

DRUGS (1)
  1. IMPLANON [Suspect]
     Indication: CONTRACEPTION
     Dosage: 1 ROD UP TO 3 THREES, RIGHT ARM
     Route: 059
     Dates: start: 20120910

REACTIONS (4)
  - Chest pain [Recovered/Resolved]
  - Breast pain [Unknown]
  - Metrorrhagia [Unknown]
  - Menstrual disorder [Unknown]
